FAERS Safety Report 17727978 (Version 1)
Quarter: 2020Q2

REPORT INFORMATION
  Report Type: Spontaneous
  Country: US (occurrence: US)
  Receive Date: 20200429
  Receipt Date: 20200429
  Transmission Date: 20200714
  Serious: Yes (Death)
  Sender: FDA-Public Use
  Company Number: None

PATIENT
  Age: 87 Year
  Sex: Male

DRUGS (1)
  1. ANAGRELIDE 0.5 MG CAPSULE [Suspect]
     Active Substance: ANAGRELIDE

REACTIONS (1)
  - Death [None]

NARRATIVE: CASE EVENT DATE: 20200422
